FAERS Safety Report 5108103-3 (Version None)
Quarter: 2006Q3

REPORT INFORMATION
  Report Type: 
  Country: None (occurrence: None)
  Receive Date: 20060919
  Receipt Date: 20060912
  Transmission Date: 20061208
  Serious: Yes (Other)
  Sender: FDA-Public Use
  Company Number: US-JNJFOC-20060903074

PATIENT
  Sex: Male
  Weight: 87.09 kg

DRUGS (7)
  1. TYLENOL (CAPLET) [Suspect]
     Route: 048
  2. TYLENOL (CAPLET) [Suspect]
     Indication: BACK PAIN
     Route: 048
  3. CELEBREX [Concomitant]
  4. EVISTA [Concomitant]
  5. ASPIRIN [Concomitant]
  6. DOSTINEX [Concomitant]
  7. AVODART [Concomitant]

REACTIONS (1)
  - HAEMATOCHEZIA [None]
